FAERS Safety Report 10538033 (Version 3)
Quarter: 2014Q4

REPORT INFORMATION
  Report Type: Spontaneous
  Country: CA (occurrence: CA)
  Receive Date: 20141023
  Receipt Date: 20141222
  Transmission Date: 20150529
  Serious: Yes (Other)
  Sender: FDA-Public Use
  Company Number: CA-GLAXOSMITHKLINE-CA2014006416

PATIENT
  Sex: Male

DRUGS (1)
  1. NICORETTE [Suspect]
     Active Substance: NICOTINE
     Indication: NICOTINE DEPENDENCE
     Dosage: 2 MG, UNK
     Route: 048
     Dates: start: 201209

REACTIONS (6)
  - Loss of consciousness [Unknown]
  - Drug screen false positive [Unknown]
  - Blood pressure increased [Unknown]
  - Product formulation issue [Unknown]
  - Incorrect drug administration duration [Unknown]
  - Hypersensitivity [Unknown]
